FAERS Safety Report 5853078-2 (Version None)
Quarter: 2008Q3

REPORT INFORMATION
  Report Type: 
  Country: None (occurrence: None)
  Receive Date: 20080814
  Receipt Date: 20080613
  Transmission Date: 20090109
  Serious: No
  Sender: FDA-Public Use
  Company Number: WAES 0806USA02918

PATIENT
  Age: 66 Year
  Sex: Female

DRUGS (5)
  1. ISENTRESS [Suspect]
     Indication: HIV INFECTION
     Dates: start: 20080525, end: 20080602
  2. BACTRIM [Concomitant]
  3. INTELENCE [Concomitant]
  4. TRUVADA [Concomitant]
  5. AMOXICILLIN [Concomitant]

REACTIONS (2)
  - ANGIOEDEMA [None]
  - HYPERSENSITIVITY [None]
